FAERS Safety Report 7617073-5 (Version None)
Quarter: 2011Q3

REPORT INFORMATION
  Report Type: 
  Country: None (occurrence: None)
  Receive Date: 20110718
  Receipt Date: 20110705
  Transmission Date: 20111222
  Serious: Yes (Other)
  Sender: FDA-Public Use
  Company Number: US-ELI_LILLY_AND_COMPANY-US200908006579

PATIENT
  Sex: Female

DRUGS (4)
  1. FORTEO [Suspect]
     Dosage: 20 UG, QD
  2. FORTEO [Suspect]
     Dosage: 20 UG, QD
  3. FORTEO [Suspect]
     Indication: OSTEOPOROSIS
     Dosage: 20 UG, QD
     Dates: start: 20090801
  4. FORTEO [Suspect]
     Dosage: 20 UG, QD

REACTIONS (10)
  - VIITH NERVE PARALYSIS [None]
  - INJECTION SITE REACTION [None]
  - INJECTION SITE HAEMORRHAGE [None]
  - ASTHENIA [None]
  - BONE DISORDER [None]
  - DROOLING [None]
  - APHASIA [None]
  - INJECTION SITE HAEMATOMA [None]
  - TRANSIENT ISCHAEMIC ATTACK [None]
  - DIZZINESS [None]
